FAERS Safety Report 16327466 (Version 1)
Quarter: 2019Q2

REPORT INFORMATION
  Report Type: Spontaneous
  Country: US (occurrence: US)
  Receive Date: 20190517
  Receipt Date: 20190517
  Transmission Date: 20190711
  Serious: Yes (Hospitalization)
  Sender: FDA-Public Use
  Company Number: US-ANIPHARMA-2019-US-008645

PATIENT
  Age: 78 Year
  Sex: Female
  Weight: 62.14 kg

DRUGS (15)
  1. ALBUTEROL. [Suspect]
     Active Substance: ALBUTEROL
     Dosage: INHALE 2 PUFFS BY MOUTH EVERY 6 HOURS AS NEEDED FOR WHEEZING
  2. ANASTROZOLE. [Suspect]
     Active Substance: ANASTROZOLE
     Indication: PRODUCT USED FOR UNKNOWN INDICATION
     Dosage: TAKE 1 TAB BY MOUTH ONCE DAILY
     Route: 048
  3. MELATONIN OR [Suspect]
     Active Substance: MELATONIN
     Dosage: TAKE 1 TAB BY MOUTH AT BEDTIME AS NEEDED
  4. SYMBICORT [Suspect]
     Active Substance: BUDESONIDE\FORMOTEROL FUMARATE DIHYDRATE
     Dosage: INHALE 2 PUFFS BY MOUTH TWICE DAILY.
  5. COZAAR [Suspect]
     Active Substance: LOSARTAN POTASSIUM
     Dosage: TAKE 1 TAB BY MOUHT ONCE DAILY
  6. DOCUSATE SODIUM. [Suspect]
     Active Substance: DOCUSATE SODIUM
     Dosage: TAKE 1 CAP BY MOUTH TWICE DAILY. TAKE 102 TABLETS THREE TIMES DAILY. HOLD IF YOU START HAVING DIARRH
  7. ALBUTEROL-IPRATROPIUM [Suspect]
     Active Substance: ALBUTEROL\IPRATROPIUM
     Dosage: INHALE 3 ML BY NEBULIZATION FOUR TIMES DAILY.
  8. PREDNISONE. [Suspect]
     Active Substance: PREDNISONE
     Dosage: TAKE 1 TAB BY MOUTH ONCE DAILY
  9. MULTIPLE VITAMIN [Suspect]
     Active Substance: VITAMINS
     Dosage: TAKE 1 TAB BY MOUTH ONCE DAILY
  10. CHOLECALCIFEROL [Suspect]
     Active Substance: CHOLECALCIFEROL
     Dosage: TAKE 2 TABS BY MOUTH ONCE DAILY
  11. DILACOR XR [Suspect]
     Active Substance: DILTIAZEM HYDROCHLORIDE
     Dosage: TAKE 1 CAP BY MOUTH ONCE DAILY
  12. HYDRALAZINE [Suspect]
     Active Substance: HYDRALAZINE HYDROCHLORIDE
     Dosage: TAKE 1 TAB BY MOUTH EVERY 8 HOURS
  13. NICOTINE. [Suspect]
     Active Substance: NICOTINE
     Dosage: PLACE 1 PATCH ONTO SKIN ONCE DAILY
  14. XANAX [Suspect]
     Active Substance: ALPRAZOLAM
     Dosage: TAKE 1 TAB BY MOUTH EACH MORNING. AND 1 TABLET EACH EVENING
  15. TYLENOL [Suspect]
     Active Substance: ACETAMINOPHEN
     Dosage: TAKE 2 TABS BY MOUTH EVERY 6 HOURS AS NEEDED

REACTIONS (9)
  - Diarrhoea [Unknown]
  - Urinary tract infection [Unknown]
  - Dyspnoea [Unknown]
  - Pyelonephritis [Unknown]
  - Hypoxia [Unknown]
  - Atrial fibrillation [Unknown]
  - Asthenia [Unknown]
  - Visual impairment [Unknown]
  - Acute respiratory failure [Unknown]

NARRATIVE: CASE EVENT DATE: 201904
